FAERS Safety Report 22962661 (Version 3)
Quarter: 2024Q1

REPORT INFORMATION
  Report Type: Spontaneous
  Country: US (occurrence: US)
  Receive Date: 20230920
  Receipt Date: 20240102
  Transmission Date: 20240409
  Serious: Yes (Hospitalization, Other)
  Sender: FDA-Public Use
  Company Number: US-PFIZER INC-PV202300058319

PATIENT
  Age: 70 Year
  Sex: Male
  Weight: 73.48 kg

DRUGS (10)
  1. BRAFTOVI [Suspect]
     Active Substance: ENCORAFENIB
     Indication: Malignant melanoma
     Dosage: 450 MG, DAILY (6 CAPSULES BY MOUTH DAILY)
     Route: 048
     Dates: start: 20230227
  2. MEKTOVI [Suspect]
     Active Substance: BINIMETINIB
     Indication: Malignant melanoma
     Dosage: 90 MG, DAILY (6 TABLETS EACH DAY)
     Dates: start: 20230227
  3. MEKTOVI [Suspect]
     Active Substance: BINIMETINIB
     Dosage: 90 MG, DAILY (6 TABLETS EACH DAY)
  4. MEKTOVI [Suspect]
     Active Substance: BINIMETINIB
     Dosage: 45 MG, 2X/DAY (TAKE 3 TABLETS BY MOUTH EVERY 12 HOURS)
     Route: 048
  5. LIPITOR [Concomitant]
     Active Substance: ATORVASTATIN CALCIUM
     Dosage: 40 MG
  6. METOPROLOL [Concomitant]
     Active Substance: METOPROLOL
     Dosage: TAKING TWICE, ONCE 25 MG AND ONCE 50 MG
  7. METOPROLOL [Concomitant]
     Active Substance: METOPROLOL
     Dosage: TAKING TWICE, ONCE 25 MG AND ONCE 50 MG
  8. EZETIMIBE [Concomitant]
     Active Substance: EZETIMIBE
     Dosage: 10 MG
  9. NIFEDIPINE [Concomitant]
     Active Substance: NIFEDIPINE
     Dosage: 60 MG
     Dates: start: 20230501
  10. ISOSORBIDE MONONITRATE [Concomitant]
     Active Substance: ISOSORBIDE MONONITRATE
     Dosage: 30 MG

REACTIONS (3)
  - Blood pressure decreased [Recovered/Resolved]
  - Heart rate decreased [Recovered/Resolved]
  - Loss of consciousness [Recovered/Resolved]

NARRATIVE: CASE EVENT DATE: 20230909
